FAERS Safety Report 23871704 (Version 1)
Quarter: 2024Q2

REPORT INFORMATION
  Report Type: Spontaneous
  Country: TR (occurrence: TR)
  Receive Date: 20240520
  Receipt Date: 20240520
  Transmission Date: 20240715
  Serious: Yes (Life-Threatening, Hospitalization)
  Sender: FDA-Public Use
  Company Number: TR-JNJFOC-20240538095

PATIENT
  Age: 77 Year
  Sex: Male
  Weight: 82 kg

DRUGS (17)
  1. VELCADE [Suspect]
     Active Substance: BORTEZOMIB
     Indication: Plasma cell myeloma
     Dosage: 1.3 MILLIGRAM/SQ. METER
     Route: 058
     Dates: start: 20240206
  2. DEXAMETHASONE [Suspect]
     Active Substance: DEXAMETHASONE
     Indication: Plasma cell myeloma
     Dosage: 20 MILLIGRAM
     Route: 048
     Dates: start: 20240206
  3. DARATUMUMAB [Suspect]
     Active Substance: DARATUMUMAB
     Indication: Plasma cell myeloma
     Dosage: 1800 MILLIGRAM
     Route: 058
     Dates: start: 20240206
  4. Beloc [Concomitant]
     Indication: Arteriosclerosis coronary artery
     Dosage: 50 MILLIGRAM, QD
     Route: 048
  5. ELIQUIS [Concomitant]
     Active Substance: APIXABAN
     Indication: Arteriosclerosis coronary artery
     Dosage: 5 MILLIGRAM, BID
     Route: 048
     Dates: start: 20240419
  6. ADVANTAN M [Concomitant]
     Indication: Injection site erythema
     Dosage: 1 PERCENT
     Route: 065
     Dates: start: 20240227
  7. ALOXI [Concomitant]
     Active Substance: PALONOSETRON HYDROCHLORIDE
     Indication: Nausea
     Dosage: 0.05 MILLIGRAM
     Route: 042
     Dates: start: 20240209
  8. AMOXICILLIN\CLAVULANIC ACID [Concomitant]
     Active Substance: AMOXICILLIN\CLAVULANIC ACID
     Indication: Upper respiratory tract infection
     Dosage: 1000 MILLIGRAM
     Route: 048
     Dates: start: 20240404, end: 20240408
  9. AVELOX [Concomitant]
     Active Substance: MOXIFLOXACIN HYDROCHLORIDE
     Indication: Upper respiratory tract infection
     Dosage: 400 MILLIGRAM, QD
     Route: 048
     Dates: start: 20240402, end: 20240404
  10. BACTRIM [Concomitant]
     Active Substance: SULFAMETHOXAZOLE\TRIMETHOPRIM
     Indication: Prophylaxis
     Dosage: 2 DOSAGE FORM
     Route: 048
     Dates: start: 20240406
  11. CITOVIR [Concomitant]
     Indication: Cytomegalovirus test positive
     Dosage: 900 MILLIGRAM, BID
     Route: 048
     Dates: start: 20240308, end: 20240411
  12. ENOXAPARIN SODIUM [Concomitant]
     Active Substance: ENOXAPARIN SODIUM
     Indication: Fibrin D dimer increased
     Dosage: UNK UNK, BID
     Route: 065
     Dates: start: 20240419
  13. LANSOPRAZOLE [Concomitant]
     Active Substance: LANSOPRAZOLE
     Indication: Prophylaxis
     Dosage: 1 DOSAGE FORM, QD
     Route: 048
     Dates: start: 20240206
  14. TENOFOVIR DISOPROXIL [Concomitant]
     Active Substance: TENOFOVIR DISOPROXIL
     Indication: Prophylaxis
     Dosage: 1 DOSAGE FORM, QD
     Route: 048
     Dates: start: 20240206
  15. ALLOPURINOL [Concomitant]
     Active Substance: ALLOPURINOL
     Indication: Prophylaxis
     Dosage: UNK UNK, QD
     Route: 048
     Dates: start: 20240206
  16. ZYRTEC [Concomitant]
     Active Substance: CETIRIZINE HYDROCHLORIDE
     Indication: Injection site erythema
     Dosage: 10 MILLIGRAM, QD
     Route: 048
     Dates: start: 20240227
  17. AREDIA [Concomitant]
     Active Substance: PAMIDRONATE DISODIUM
     Indication: Hypocalcaemia
     Dosage: 60 MILLIGRAM
     Route: 042
     Dates: start: 20240322, end: 20240322

REACTIONS (5)
  - Effusion [Recovering/Resolving]
  - Haemorrhage subcutaneous [Recovering/Resolving]
  - Hypervolaemia [Recovering/Resolving]
  - Fall [Recovered/Resolved]
  - Diarrhoea [Recovering/Resolving]

NARRATIVE: CASE EVENT DATE: 20240401
